FAERS Safety Report 11856268 (Version 1)
Quarter: 2015Q4

REPORT INFORMATION
  Report Type: Report from Study
  Country: US (occurrence: JP)
  Receive Date: 20151221
  Receipt Date: 20151221
  Transmission Date: 20160305
  Serious: Yes (Hospitalization)
  Sender: FDA-Public Use
  Company Number: JP-AKRON, INC.-1045720

PATIENT
  Age: 95 Year
  Sex: Female

DRUGS (7)
  1. AZASITE [Suspect]
     Active Substance: AZITHROMYCIN MONOHYDRATE
     Indication: CONJUNCTIVITIS BACTERIAL
     Route: 047
     Dates: start: 20151125, end: 20151202
  2. EXFORGE [Concomitant]
     Active Substance: AMLODIPINE BESYLATE\VALSARTAN
  3. AMLODIPINE [Concomitant]
     Active Substance: AMLODIPINE BESYLATE
  4. PROTECADIN [Concomitant]
     Active Substance: LAFUTIDINE
  5. NIFEDIPINE. [Concomitant]
     Active Substance: NIFEDIPINE
  6. ZETIA [Concomitant]
     Active Substance: EZETIMIBE
  7. FERROMIA [Concomitant]
     Active Substance: FERROUS CITRATE

REACTIONS (3)
  - Urinary tract infection [Not Recovered/Not Resolved]
  - Pyrexia [Not Recovered/Not Resolved]
  - Pneumonia [Not Recovered/Not Resolved]

NARRATIVE: CASE EVENT DATE: 20151208
